FAERS Safety Report 10463335 (Version 2)
Quarter: 2014Q4

REPORT INFORMATION
  Report Type: Spontaneous
  Country: US (occurrence: US)
  Receive Date: 20140919
  Receipt Date: 20141107
  Transmission Date: 20150528
  Serious: Yes (Hospitalization, Other)
  Sender: FDA-Public Use
  Company Number: US-BRISTOL-MYERS SQUIBB COMPANY-21387840

PATIENT
  Age: 63 Year
  Sex: Female
  Weight: 81.63 kg

DRUGS (8)
  1. COUMADIN [Suspect]
     Active Substance: WARFARIN SODIUM
     Indication: ATRIAL FIBRILLATION
     Route: 048
     Dates: start: 20101110, end: 20140620
  2. TREPROSTINIL [Suspect]
     Active Substance: TREPROSTINIL
     Indication: COR PULMONALE CHRONIC
     Dosage: 1DF:0.6MG/ML?18-72 MCG?18-54MCG
     Route: 055
     Dates: start: 20131025
  3. TRACLEER [Concomitant]
     Active Substance: BOSENTAN\BOSENTAN MONOHYDRATE
  4. BOSENTAN [Concomitant]
     Active Substance: BOSENTAN\BOSENTAN MONOHYDRATE
  5. ADVAIR HFA [Concomitant]
     Active Substance: FLUTICASONE PROPIONATE\SALMETEROL XINAFOATE
  6. SILDENAFIL. [Concomitant]
     Active Substance: SILDENAFIL
  7. LASIX [Concomitant]
     Active Substance: FUROSEMIDE
  8. REVATIO [Concomitant]
     Active Substance: SILDENAFIL CITRATE

REACTIONS (9)
  - Fatigue [Recovering/Resolving]
  - Haemorrhagic anaemia [Unknown]
  - Pain in extremity [Recovering/Resolving]
  - Gastrointestinal haemorrhage [Unknown]
  - Arthralgia [Recovering/Resolving]
  - Gout [Unknown]
  - Scleroderma [Unknown]
  - Polyp [Unknown]
  - Oedema peripheral [Unknown]

NARRATIVE: CASE EVENT DATE: 20140616
